FAERS Safety Report 6616222-5 (Version None)
Quarter: 2010Q1

REPORT INFORMATION
  Report Type: 
  Country: None (occurrence: None)
  Receive Date: 20100305
  Receipt Date: 20100303
  Transmission Date: 20100710
  Serious: Yes (Death, Hospitalization)
  Sender: FDA-Public Use
  Company Number: US-CEPHALON-2010000176

PATIENT
  Sex: Male
  Weight: 44 kg

DRUGS (1)
  1. TREANDA [Suspect]
     Indication: NON-HODGKIN'S LYMPHOMA
     Dates: start: 20091112, end: 20091211

REACTIONS (5)
  - DEHYDRATION [None]
  - DISEASE PROGRESSION [None]
  - INTESTINAL OBSTRUCTION [None]
  - METABOLIC ACIDOSIS [None]
  - NON-HODGKIN'S LYMPHOMA [None]
